FAERS Safety Report 23391409 (Version 1)
Quarter: 2024Q1

REPORT INFORMATION
  Report Type: Spontaneous
  Country: US (occurrence: US)
  Receive Date: 20240111
  Receipt Date: 20240111
  Transmission Date: 20240409
  Serious: No
  Sender: FDA-Public Use
  Company Number: US-drreddys-SPO/USA/23/0188046

PATIENT
  Age: 20 Year

DRUGS (2)
  1. ACCUTANE [Suspect]
     Active Substance: ISOTRETINOIN
     Indication: Product used for unknown indication
     Route: 048
  2. ACCUTANE [Suspect]
     Active Substance: ISOTRETINOIN

REACTIONS (2)
  - Adverse drug reaction [Unknown]
  - Drug ineffective [Unknown]
